FAERS Safety Report 17568485 (Version 2)
Quarter: 2020Q3

REPORT INFORMATION
  Report Type: Spontaneous
  Country: DE (occurrence: DE)
  Receive Date: 20200320
  Receipt Date: 20200709
  Transmission Date: 20201102
  Serious: Yes (Hospitalization, Other)
  Sender: FDA-Public Use
  Company Number: DE-ELI_LILLY_AND_COMPANY-DE202003005611

PATIENT
  Age: 26 Year
  Sex: Male
  Weight: 85 kg

DRUGS (6)
  1. ZYPADHERA [Suspect]
     Active Substance: OLANZAPINE PAMOATE
     Indication: SCHIZOPHRENIA
     Dosage: 405 MG, EVERY 28 DAYS
     Route: 030
     Dates: start: 202001
  2. ZYPADHERA [Suspect]
     Active Substance: OLANZAPINE PAMOATE
     Indication: SCHIZOPHRENIA
     Dosage: 405 MG, EVERY 28 DAYS
     Route: 030
     Dates: start: 202001
  3. ZYPADHERA [Suspect]
     Active Substance: OLANZAPINE PAMOATE
     Dosage: 405 MG, EVERY 28 DAYS
     Route: 030
     Dates: start: 20200224
  4. ZYPADHERA [Suspect]
     Active Substance: OLANZAPINE PAMOATE
     Indication: SCHIZOPHRENIA
     Dosage: 405 MG, EVERY 28 DAYS
     Route: 030
     Dates: start: 202001
  5. ZYPADHERA [Suspect]
     Active Substance: OLANZAPINE PAMOATE
     Dosage: 405 MG, EVERY 28 DAYS
     Route: 030
     Dates: start: 20200224
  6. ZYPADHERA [Suspect]
     Active Substance: OLANZAPINE PAMOATE
     Dosage: 405 MG, EVERY 28 DAYS
     Route: 030
     Dates: start: 20200224

REACTIONS (5)
  - Post-injection delirium sedation syndrome [Recovered/Resolved]
  - Disturbance in attention [Recovered/Resolved]
  - Vomiting [Recovered/Resolved]
  - Blood creatine phosphokinase increased [Recovered/Resolved]
  - Hypotension [Recovered/Resolved]

NARRATIVE: CASE EVENT DATE: 20200224
